FAERS Safety Report 5168249-0 (Version None)
Quarter: 2006Q4

REPORT INFORMATION
  Report Type: 
  Country: None (occurrence: None)
  Receive Date: 20061208
  Receipt Date: 20061205
  Transmission Date: 20070319
  Serious: Yes (Other)
  Sender: FDA-Public Use
  Company Number: DE-GLAXOSMITHKLINE-D0051691A

PATIENT
  Sex: Male

DRUGS (2)
  1. LEUKERAN [Suspect]
     Indication: NEPHROTIC SYNDROME
     Route: 048
  2. CORTISONE ACETATE [Concomitant]
     Route: 065

REACTIONS (2)
  - NEUROPATHY [None]
  - WALKING DISABILITY [None]
